FAERS Safety Report 4624312-1 (Version None)
Quarter: 2005Q1

REPORT INFORMATION
  Report Type: 
  Country: None (occurrence: None)
  Receive Date: 20050331
  Receipt Date: 20040901
  Transmission Date: 20050727
  Serious: Yes (Hospitalization)
  Sender: FDA-Public Use
  Company Number: NL-ABBOTT-04P-114-0272164-00

PATIENT
  Sex: Female
  Weight: 74 kg

DRUGS (17)
  1. HUMIRA [Suspect]
     Indication: RHEUMATOID ARTHRITIS
     Route: 058
     Dates: start: 20040305
  2. LEFLUNOMIDE [Concomitant]
     Indication: RHEUMATOID ARTHRITIS
     Dates: start: 20021029
  3. CALCITRIOL [Concomitant]
     Indication: OSTEOPOROSIS
     Dates: start: 20021001
  4. CALCIUM SAND [Concomitant]
     Indication: OSTEOPOROSIS
     Dates: start: 20021001
  5. LISINOPRIL [Concomitant]
     Indication: HYPERTENSION
     Dates: start: 19970225
  6. PARACETAMOL [Concomitant]
     Indication: RHEUMATOID ARTHRITIS
     Dates: start: 20030101
  7. CODEINE [Concomitant]
     Indication: COUGH
     Dates: start: 20020101
  8. OMEPRAZOLE [Concomitant]
     Indication: GASTROINTESTINAL DISORDER
     Dates: start: 19970901
  9. FUROSEMIDE [Concomitant]
     Indication: CARDIAC FAILURE
     Dates: start: 20021001
  10. B-KOMPLEX ^LECIVA^ [Concomitant]
     Indication: RHEUMATOID ARTHRITIS
     Dates: start: 19890104
  11. FUROSEMIDE [Concomitant]
     Dates: start: 19890104
  12. ACTRAPID [Concomitant]
     Indication: DIABETES MELLITUS
     Dates: start: 20030110
  13. ISOPHANE INSULIN [Concomitant]
     Indication: DIABETES MELLITUS
     Dates: start: 20030110
  14. PAMIDRONATE DISODIUM [Concomitant]
     Indication: OSTEOPOROSIS
     Dates: start: 20021001
  15. DICLOFENAC [Concomitant]
     Indication: RHEUMATOID ARTHRITIS
     Dates: start: 20030101
  16. AMLODIPINE [Concomitant]
     Indication: HYPERTENSION
     Dates: start: 20040101
  17. COMMERCIAL HUMIRA [Concomitant]
     Indication: RHEUMATOID ARTHRITIS
     Route: 058
     Dates: start: 20040225

REACTIONS (1)
  - INFLAMMATION [None]
